FAERS Safety Report 21796086 (Version 2)
Quarter: 2023Q1

REPORT INFORMATION
  Report Type: Spontaneous
  Country: CA (occurrence: CA)
  Receive Date: 20221229
  Receipt Date: 20230111
  Transmission Date: 20230418
  Serious: Yes (Hospitalization)
  Sender: FDA-Public Use
  Company Number: CA-TEVA-2022-CA-2839624

PATIENT
  Age: 34 Year
  Sex: Male

DRUGS (7)
  1. AZITHROMYCIN [Suspect]
     Active Substance: AZITHROMYCIN
     Indication: Pneumonia
     Route: 065
  2. LEVOFLOXACIN [Suspect]
     Active Substance: LEVOFLOXACIN
     Indication: Cystic fibrosis
     Route: 055
     Dates: start: 202103
  3. TOBRAMYCIN [Suspect]
     Active Substance: TOBRAMYCIN
     Indication: Cystic fibrosis
     Route: 055
     Dates: start: 202001
  4. COTRIMOXAZOLE [Suspect]
     Active Substance: SULFAMETHOXAZOLE\TRIMETHOPRIM
     Indication: Pneumonia
     Route: 065
  5. MEROPENEM [Suspect]
     Active Substance: MEROPENEM
     Indication: Pneumonia
     Route: 065
  6. DORNASE ALFA [Suspect]
     Active Substance: DORNASE ALFA
     Indication: Pneumonia
     Route: 065
  7. SODIUM CHLORIDE [Suspect]
     Active Substance: SODIUM CHLORIDE
     Indication: Pneumonia
     Route: 055

REACTIONS (4)
  - Rash [Unknown]
  - Hypertransaminasaemia [Unknown]
  - Drug ineffective [Unknown]
  - Off label use [Unknown]
